FAERS Safety Report 15485246 (Version 1)
Quarter: 2018Q4

REPORT INFORMATION
  Report Type: Spontaneous
  Country: US (occurrence: US)
  Receive Date: 20181010
  Receipt Date: 20181010
  Transmission Date: 20190205
  Serious: No
  Sender: FDA-Public Use
  Company Number: US-ROCHE-2093881

PATIENT
  Age: 7 Year
  Sex: Male

DRUGS (1)
  1. ZELBORAF [Suspect]
     Active Substance: VEMURAFENIB
     Indication: BRAIN NEOPLASM
     Route: 048
     Dates: start: 20180217

REACTIONS (4)
  - Headache [Recovered/Resolved]
  - Vision blurred [Recovered/Resolved]
  - Rash generalised [Unknown]
  - Rash pruritic [Unknown]

NARRATIVE: CASE EVENT DATE: 20180313
